FAERS Safety Report 16985416 (Version 1)
Quarter: 2019Q4

REPORT INFORMATION
  Report Type: Spontaneous
  Country: US (occurrence: US)
  Receive Date: 20190918
  Receipt Date: 20190918
  Transmission Date: 20200122
  Serious: Yes (Death)
  Sender: FDA-Public Use
  Company Number: None

PATIENT
  Age: 74 Year
  Sex: Male

DRUGS (13)
  1. ALLOPURINOL. [Concomitant]
     Active Substance: ALLOPURINOL
  2. ATORVASTATIN [Concomitant]
     Active Substance: ATORVASTATIN
  3. DESLORATADIN [Concomitant]
     Active Substance: DESLORATADINE
  4. DILTIAZEM. [Concomitant]
     Active Substance: DILTIAZEM
  5. FINASTERIDE. [Concomitant]
     Active Substance: FINASTERIDE
  6. KLOR-CON [Concomitant]
     Active Substance: POTASSIUM CHLORIDE
  7. ESBRIET [Suspect]
     Active Substance: PIRFENIDONE
     Indication: IDIOPATHIC PULMONARY FIBROSIS
     Route: 048
     Dates: start: 20180504, end: 20190913
  8. ASPIRIN. [Concomitant]
     Active Substance: ASPIRIN
  9. VITAMIN C [Concomitant]
     Active Substance: ASCORBIC ACID
  10. CARVEDILOL. [Concomitant]
     Active Substance: CARVEDILOL
  11. TORSEMIDE. [Concomitant]
     Active Substance: TORSEMIDE
  12. XARELTO [Concomitant]
     Active Substance: RIVAROXABAN
  13. OLMESA MEDOX [Concomitant]

REACTIONS (1)
  - Death [None]

NARRATIVE: CASE EVENT DATE: 20190913
